FAERS Safety Report 24343268 (Version 2)
Quarter: 2024Q4

REPORT INFORMATION
  Report Type: Spontaneous
  Country: US (occurrence: US)
  Receive Date: 20240920
  Receipt Date: 20241011
  Transmission Date: 20250115
  Serious: No
  Sender: BAYER
  Company Number: US-BAYER-2024A132253

PATIENT
  Sex: Female

DRUGS (1)
  1. CLIMARA [Suspect]
     Active Substance: ESTRADIOL
     Dosage: 0.0375MG/1D 4TTSM US
     Route: 062

REACTIONS (5)
  - Device adhesion issue [None]
  - Night sweats [None]
  - Hormone level abnormal [None]
  - Breast pain [None]
  - Headache [None]
